FAERS Safety Report 6354321-6 (Version None)
Quarter: 2009Q3

REPORT INFORMATION
  Report Type: 
  Country: None (occurrence: None)
  Receive Date: 20090909
  Receipt Date: 20090827
  Transmission Date: 20100115
  Serious: Yes (Other)
  Sender: FDA-Public Use
  Company Number: 2009SP022595

PATIENT
  Age: 81 Year
  Sex: Male

DRUGS (6)
  1. TEMODAR [Suspect]
     Indication: GLIOBLASTOMA MULTIFORME
  2. NEXIUM [Concomitant]
  3. DECADRON [Concomitant]
  4. KEPPRA [Concomitant]
  5. FLOMAX [Concomitant]
  6. ZOFRAN [Concomitant]

REACTIONS (2)
  - CONSTIPATION [None]
  - DIARRHOEA [None]
